FAERS Safety Report 4340504-3 (Version None)
Quarter: 2004Q2

REPORT INFORMATION
  Report Type: 
  Country: None (occurrence: None)
  Receive Date: 20040401
  Receipt Date: 20040408
  Transmission Date: 20050107
  Serious: Yes (Death, Hospitalization)
  Sender: FDA-Public Use
  Company Number: STA-AE-04-MTX-150

PATIENT
  Age: 75 Year
  Sex: Male

DRUGS (5)
  1. RHEUMATREX [Suspect]
     Indication: RHEUMATOID ARTHRITIS
     Dosage: 6 MG 1X PER 1 WK, ORAL
     Route: 048
     Dates: start: 20040312, end: 20040326
  2. PERSANTIN [Concomitant]
  3. CARVEDILOL [Concomitant]
  4. PREDNISOLONE [Concomitant]
  5. GLUCOBAY [Concomitant]

REACTIONS (5)
  - BONE MARROW DEPRESSION [None]
  - DEPRESSED LEVEL OF CONSCIOUSNESS [None]
  - SEPSIS [None]
  - SHOCK [None]
  - STOMATITIS [None]
